FAERS Safety Report 16633504 (Version 1)
Quarter: 2019Q3

REPORT INFORMATION
  Report Type: Spontaneous
  Country: US (occurrence: US)
  Receive Date: 20190725
  Receipt Date: 20190725
  Transmission Date: 20191004
  Serious: No
  Sender: FDA-Public Use
  Company Number: None

PATIENT
  Age: 30 Year
  Sex: Female
  Weight: 53.55 kg

DRUGS (3)
  1. AURO-AMOXICILLIN [Suspect]
     Active Substance: AMOXICILLIN
     Indication: ANTI-INFECTIVE THERAPY
     Dosage: ?          QUANTITY:30 CAPSULE(S);?
     Route: 048
     Dates: start: 20190722, end: 20190725
  2. VITAFUSION MULTIVITES VITAMINS [Concomitant]
  3. NATURES BOUNTY HAIR, SKIN AND NAIL VITAMIN [Concomitant]

REACTIONS (4)
  - Urticaria [None]
  - Abdominal pain upper [None]
  - Diarrhoea [None]
  - Abdominal distension [None]

NARRATIVE: CASE EVENT DATE: 20190722
